FAERS Safety Report 24985659 (Version 1)
Quarter: 2025Q1

REPORT INFORMATION
  Report Type: Spontaneous
  Country: CN (occurrence: None)
  Receive Date: 20250219
  Receipt Date: 20250219
  Transmission Date: 20250409
  Serious: No
  Sender: ALEXION PHARMACEUTICALS
  Company Number: CN-AstraZeneca-2012SE36679

PATIENT
  Age: 53 Year

DRUGS (5)
  1. NEXIUM I.V. [Suspect]
     Active Substance: ESOMEPRAZOLE SODIUM
     Indication: Upper gastrointestinal haemorrhage
     Dosage: UNK UNK, BID
  2. PANTOPRAZOLE [Suspect]
     Active Substance: PANTOPRAZOLE
  3. LANSOPRAZOLE [Concomitant]
     Active Substance: LANSOPRAZOLE
  4. ETHAMSYLATE [Concomitant]
     Active Substance: ETHAMSYLATE
  5. AMINOMETHYLBENZOIC ACID [Concomitant]
     Active Substance: AMINOMETHYLBENZOIC ACID

REACTIONS (1)
  - Tinnitus [Recovered/Resolved with Sequelae]
